FAERS Safety Report 10191794 (Version 1)
Quarter: 2014Q2

REPORT INFORMATION
  Report Type: Spontaneous
  Country: AU (occurrence: AU)
  Receive Date: 20140523
  Receipt Date: 20140523
  Transmission Date: 20141212
  Serious: Yes (Death)
  Sender: FDA-Public Use
  Company Number: AU-ACTAVIS-2014-10786

PATIENT
  Sex: Male

DRUGS (2)
  1. MORPHINE SULFATE (UNKNOWN) [Suspect]
     Indication: PAIN
     Dosage: 25 MG, UNK
     Route: 065
  2. NORSPAN                            /00444001/ [Concomitant]
     Indication: PAIN
     Dosage: UNKNOWN
     Route: 062

REACTIONS (2)
  - Accidental overdose [Fatal]
  - Death [Fatal]
